FAERS Safety Report 4937050-2 (Version None)
Quarter: 2006Q1

REPORT INFORMATION
  Report Type: 
  Country: None (occurrence: None)
  Receive Date: 20060309
  Receipt Date: 20050930
  Transmission Date: 20060701
  Serious: Yes (Death, Hospitalization)
  Sender: FDA-Public Use
  Company Number: US-MERCK-0510USA01910

PATIENT
  Age: 89 Year
  Sex: Female
  Weight: 60 kg

DRUGS (5)
  1. VIOXX [Suspect]
     Indication: OSTEOARTHRITIS
     Route: 048
     Dates: start: 20010101, end: 20040901
  2. VIOXX [Suspect]
     Indication: RHEUMATOID ARTHRITIS
     Route: 048
     Dates: start: 20010101, end: 20040901
  3. CELEBREX [Concomitant]
     Route: 065
  4. LASIX [Concomitant]
     Route: 065
  5. TOPROL-XL [Concomitant]
     Route: 048
     Dates: start: 20010101, end: 20040901

REACTIONS (25)
  - ACUTE PRERENAL FAILURE [None]
  - ADVERSE EVENT [None]
  - ANAEMIA [None]
  - CARDIAC FAILURE CONGESTIVE [None]
  - CEREBROVASCULAR ACCIDENT [None]
  - DECUBITUS ULCER [None]
  - DEHYDRATION [None]
  - FAECALOMA [None]
  - GASTRIC ULCER [None]
  - HAEMODIALYSIS [None]
  - HYPERCALCAEMIA [None]
  - HYPERKALAEMIA [None]
  - HYPERTENSION [None]
  - HYPERTENSIVE NEPHROPATHY [None]
  - HYPOKALAEMIA [None]
  - HYPOTENSION [None]
  - NEPHROSCLEROSIS [None]
  - OSTEOARTHRITIS [None]
  - PULMONARY OEDEMA [None]
  - RECTAL ULCER [None]
  - RENAL FAILURE [None]
  - RENAL FAILURE ACUTE [None]
  - RENAL FAILURE CHRONIC [None]
  - SEPSIS [None]
  - UPPER GASTROINTESTINAL HAEMORRHAGE [None]
